FAERS Safety Report 25239118 (Version 1)
Quarter: 2025Q2

REPORT INFORMATION
  Report Type: Report from Study
  Country: US (occurrence: US)
  Receive Date: 20250425
  Receipt Date: 20250425
  Transmission Date: 20250717
  Serious: Yes (Death, Other)
  Sender: ACADIA PHARMACEUTICALS
  Company Number: US-ACADIA PHARMACEUTICALS INC.-ACA-2025-PIM-004802

PATIENT
  Age: 89 Year
  Sex: Male

DRUGS (10)
  1. NUPLAZID [Suspect]
     Active Substance: PIMAVANSERIN TARTRATE
     Indication: Parkinson^s disease psychosis
     Dosage: 34 MILLIGRAM, QD
     Route: 048
     Dates: start: 20241204, end: 20250331
  2. ALFUZOSIN [Concomitant]
     Active Substance: ALFUZOSIN
  3. DONEPEZIL [Concomitant]
     Active Substance: DONEPEZIL
  4. HYDROXYUREA [Concomitant]
     Active Substance: HYDROXYUREA
  5. RYTARY [Concomitant]
     Active Substance: CARBIDOPA\LEVODOPA
  6. SEROQUEL [Concomitant]
     Active Substance: QUETIAPINE FUMARATE
  7. SIMVASTATIN [Concomitant]
     Active Substance: SIMVASTATIN
  8. TORSEMIDE [Concomitant]
     Active Substance: TORSEMIDE
  9. XADAGO [Concomitant]
     Active Substance: SAFINAMIDE MESYLATE
  10. SINEMET [Concomitant]
     Active Substance: CARBIDOPA\LEVODOPA

REACTIONS (1)
  - Death [Fatal]

NARRATIVE: CASE EVENT DATE: 20250331
